FAERS Safety Report 6109995-1 (Version None)
Quarter: 2009Q1

REPORT INFORMATION
  Report Type: 
  Country: None (occurrence: None)
  Receive Date: 20090310
  Receipt Date: 20081111
  Transmission Date: 20090719
  Serious: No
  Sender: FDA-Public Use
  Company Number: A0755745A

PATIENT
  Age: 57 Year
  Sex: Male

DRUGS (2)
  1. NICORETTE [Suspect]
  2. NICODERM CQ [Suspect]

REACTIONS (3)
  - ABNORMAL DREAMS [None]
  - APPLICATION SITE HAEMATOMA [None]
  - INTENTIONAL DRUG MISUSE [None]
